FAERS Safety Report 6292617-7 (Version None)
Quarter: 2009Q3

REPORT INFORMATION
  Report Type: 
  Country: None (occurrence: None)
  Receive Date: 20090731
  Receipt Date: 20090727
  Transmission Date: 20100115
  Serious: Yes (Hospitalization)
  Sender: FDA-Public Use
  Company Number: US-ASTRAZENECA-2007UW01790

PATIENT
  Age: 14581 Day
  Sex: Male
  Weight: 117.9 kg

DRUGS (27)
  1. SEROQUEL [Suspect]
     Indication: BIPOLAR DISORDER
     Route: 048
     Dates: start: 19980101, end: 20040127
  2. SEROQUEL [Suspect]
     Indication: DEPRESSION
     Route: 048
     Dates: start: 19980101, end: 20040127
  3. ZYPREXA [Concomitant]
     Dates: start: 20010401, end: 20020101
  4. ZYPREXA [Concomitant]
     Dates: start: 20010421
  5. TAGAMET [Concomitant]
     Dates: start: 19930813
  6. PREDNISONE [Concomitant]
     Dates: start: 19950228
  7. ZOLOFT [Concomitant]
     Dates: start: 19980609
  8. LESCOL [Concomitant]
     Dates: start: 19990224
  9. LITHIUM CARBONATE [Concomitant]
     Dates: start: 19990315
  10. LIPITOR [Concomitant]
     Dates: start: 20001012, end: 20060611
  11. RESTORIL [Concomitant]
     Indication: SLEEP DISORDER
     Dates: start: 20001012
  12. REGLAN [Concomitant]
     Dates: start: 20001012
  13. ATACAND [Concomitant]
     Indication: BLOOD PRESSURE
     Dates: start: 20010302
  14. PROTONIX [Concomitant]
     Dates: start: 20010302
  15. AMBIEN [Concomitant]
     Indication: SLEEP DISORDER
     Dates: start: 20010302
  16. DEPAKOTE [Concomitant]
     Dates: start: 20010302
  17. MYLANTA [Concomitant]
     Dates: start: 20010302
  18. GLUCOPHAGE [Concomitant]
     Dates: start: 20010307
  19. SONATA [Concomitant]
     Indication: INSOMNIA
     Dosage: 10 MG TWO CAPSULES AT NIGHT
     Dates: start: 20010421
  20. WELLBUTRIN SR [Concomitant]
     Dates: start: 20010421
  21. SERZONE [Concomitant]
     Dosage: 200 MG 2 TABLETES AT NIGHT
     Dates: start: 20010304
  22. KLONOPIN [Concomitant]
     Dosage: 1 MG 1 AND A HALF CAPSCULE AT NIGHT
     Dates: start: 20010504
  23. ATIVAN [Concomitant]
     Indication: ANXIETY
     Dates: start: 20010505
  24. GLYBURIDE [Concomitant]
     Dates: start: 20061001
  25. CELEXA [Concomitant]
  26. HALDOL [Concomitant]
  27. THORAZINE [Concomitant]

REACTIONS (9)
  - ANHEDONIA [None]
  - BIPOLAR DISORDER [None]
  - DIABETES MELLITUS [None]
  - DIABETIC COMPLICATION [None]
  - HYPERGLYCAEMIA [None]
  - INJURY [None]
  - MENTAL DISORDER [None]
  - PAIN [None]
  - TYPE 2 DIABETES MELLITUS [None]
